FAERS Safety Report 5025065-8 (Version None)
Quarter: 2006Q2

REPORT INFORMATION
  Report Type: 
  Country: None (occurrence: None)
  Receive Date: 20060426
  Receipt Date: 20060118
  Transmission Date: 20061013
  Serious: Yes (Other)
  Sender: FDA-Public Use
  Company Number: 2006011192

PATIENT
  Age: 78 Year
  Sex: Female
  Weight: 68.0396 kg

DRUGS (4)
  1. LYRICA [Suspect]
     Indication: TRIGEMINAL NEURALGIA
     Dosage: (25 MG, INTERVAL: EVERY DAY)
     Dates: start: 20051101, end: 20050101
  2. ZETIA [Concomitant]
  3. TOPROL-XL [Concomitant]
  4. FLUOXETINE [Concomitant]

REACTIONS (3)
  - DRUG INEFFECTIVE [None]
  - PAIN [None]
  - SPEECH DISORDER [None]
